FAERS Safety Report 25967996 (Version 1)
Quarter: 2025Q4

REPORT INFORMATION
  Report Type: Spontaneous
  Country: US (occurrence: US)
  Receive Date: 20251028
  Receipt Date: 20251028
  Transmission Date: 20260119
  Serious: No
  Sender: Kenvue
  Company Number: US-KENVUE-20251000979

PATIENT
  Age: 28 Year
  Sex: Female

DRUGS (7)
  1. TYLENOL [Suspect]
     Active Substance: ACETAMINOPHEN
     Indication: Infusion site pain
     Dosage: AS NEEDED
     Route: 065
     Dates: start: 202509
  2. REMODULIN [Concomitant]
     Active Substance: TREPROSTINIL
     Indication: Pulmonary arterial hypertension
     Dosage: 0.020 MICROGRAM/KILOGRAM, CONCENTRATION 2.5 MG/ML
     Route: 042
     Dates: start: 20250909
  3. REMODULIN [Concomitant]
     Active Substance: TREPROSTINIL
     Dosage: 0.020 MICROGRAM/KILOGRAM, CONCENTRATION 2.5 MG/ML
     Route: 058
     Dates: start: 202509
  4. REMODULIN [Concomitant]
     Active Substance: TREPROSTINIL
     Dosage: 0.022 MICROGRAM/KILOGRAM
     Route: 058
     Dates: start: 202509
  5. REMODULIN [Concomitant]
     Active Substance: TREPROSTINIL
     Dosage: 22.50 NG/KG/MIN
     Route: 042
     Dates: start: 202509
  6. LIDOCAINE\PRILOCAINE [Concomitant]
     Active Substance: LIDOCAINE\PRILOCAINE
     Indication: Infusion site pain
     Dosage: UNK
     Route: 061
     Dates: start: 202509
  7. TRIAMCINOLONE [Concomitant]
     Active Substance: TRIAMCINOLONE
     Indication: Infusion site pain
     Dosage: UNK
     Route: 061
     Dates: start: 202509

REACTIONS (1)
  - Product use in unapproved indication [Unknown]

NARRATIVE: CASE EVENT DATE: 20250901
